FAERS Safety Report 20507271 (Version 1)
Quarter: 2022Q1

REPORT INFORMATION
  Report Type: Other
  Country: US (occurrence: None)
  Receive Date: 20220223
  Receipt Date: 20220223
  Transmission Date: 20220423
  Serious: Yes (Hospitalization)
  Sender: FDA-Public Use
  Company Number: US-ROCHE-3025776

PATIENT
  Sex: Female

DRUGS (1)
  1. OCREVUS [Suspect]
     Active Substance: OCRELIZUMAB
     Indication: Primary progressive multiple sclerosis
     Dosage: DATE OF PREVIOUS INFUSION: 14/JUN/2021, LAST DATE OF TREATMENT: 09/DEC/2020, DATE OF NEXT TREATMENT:
     Route: 042
     Dates: start: 20180301

REACTIONS (1)
  - COVID-19 [Not Recovered/Not Resolved]
